FAERS Safety Report 5215411-4 (Version None)
Quarter: 2007Q1

REPORT INFORMATION
  Report Type: 
  Country: None (occurrence: None)
  Receive Date: 20070117
  Receipt Date: 20070105
  Transmission Date: 20070707
  Serious: Yes (Other)
  Sender: FDA-Public Use
  Company Number: HQWYE682508JAN07

PATIENT
  Age: 33 Year
  Sex: Female

DRUGS (1)
  1. EFFEXOR XR [Suspect]
     Dates: start: 20061225

REACTIONS (2)
  - ASTHENIA [None]
  - SELF-INJURIOUS IDEATION [None]
